FAERS Safety Report 5045855-5 (Version None)
Quarter: 2006Q3

REPORT INFORMATION
  Report Type: 
  Country: None (occurrence: None)
  Receive Date: 20060710
  Receipt Date: 20060310
  Transmission Date: 20061208
  Serious: Yes (Hospitalization, Disabling, Other)
  Sender: FDA-Public Use
  Company Number: PHBS2006JP03879

PATIENT
  Age: 66 Year
  Sex: Female

DRUGS (2)
  1. ARIMIDEX [Concomitant]
     Indication: BREAST CANCER STAGE IV
     Dosage: 1 MG/D
     Route: 048
     Dates: start: 20030801
  2. AREDIA [Suspect]
     Indication: METASTASES TO BONE
     Dosage: 90 MG EVERY 4 WEEKS
     Route: 042
     Dates: start: 20030801, end: 20060220

REACTIONS (10)
  - BLOOD ALBUMIN DECREASED [None]
  - BLOOD CALCIUM DECREASED [None]
  - BLOOD CHOLESTEROL INCREASED [None]
  - BLOOD CREATININE INCREASED [None]
  - BLOOD UREA INCREASED [None]
  - BLOOD URINE PRESENT [None]
  - CREATININE RENAL CLEARANCE DECREASED [None]
  - FOCAL GLOMERULOSCLEROSIS [None]
  - NEPHROTIC SYNDROME [None]
  - PROTEINURIA [None]
